FAERS Safety Report 20237462 (Version 2)
Quarter: 2022Q1

REPORT INFORMATION
  Report Type: Spontaneous
  Country: US (occurrence: US)
  Receive Date: 20211228
  Receipt Date: 20220120
  Transmission Date: 20220423
  Serious: Yes (Other)
  Sender: FDA-Public Use
  Company Number: US-PFIZER INC-202101807093

PATIENT
  Age: 60 Year
  Sex: Female
  Weight: 53.968 kg

DRUGS (1)
  1. RETACRIT [Suspect]
     Active Substance: EPOETIN ALFA-EPBX
     Dosage: 10000 IU

REACTIONS (1)
  - Weight decreased [Unknown]
